FAERS Safety Report 10727098 (Version 1)
Quarter: 2015Q1

REPORT INFORMATION
  Report Type: Spontaneous
  Country: AT (occurrence: AT)
  Receive Date: 20150121
  Receipt Date: 20150121
  Transmission Date: 20150721
  Serious: Yes (Other)
  Sender: FDA-Public Use
  Company Number: AT-EISAI MEDICAL RESEARCH-EC-2015-003120

PATIENT
  Age: 51 Year
  Sex: Male
  Weight: 96 kg

DRUGS (9)
  1. TRITTICO [Concomitant]
     Active Substance: TRAZODONE HYDROCHLORIDE
     Indication: DEPRESSION
  2. ABILIFY [Concomitant]
     Active Substance: ARIPIPRAZOLE
     Indication: DEPRESSION
  3. FRISIUM [Concomitant]
     Active Substance: CLOBAZAM
     Indication: EPILEPSY
     Dosage: UNKNOWN
     Dates: end: 20150104
  4. LAMOTRIGINE. [Concomitant]
     Active Substance: LAMOTRIGINE
     Indication: EPILEPSY
  5. TRILEPTAL [Concomitant]
     Active Substance: OXCARBAZEPINE
     Indication: EPILEPSY
  6. SIMVASTATIN. [Concomitant]
     Active Substance: SIMVASTATIN
     Indication: HYPERLIPIDAEMIA
  7. FRISIUM [Concomitant]
     Active Substance: CLOBAZAM
     Dosage: DOSE BEING TAPPERED OFF
     Dates: start: 20150105
  8. VENLAFAXIN [Concomitant]
     Active Substance: VENLAFAXINE HYDROCHLORIDE
     Indication: DEPRESSION
  9. FYCOMPA [Suspect]
     Active Substance: PERAMPANEL
     Indication: TEMPORAL LOBE EPILEPSY
     Route: 048
     Dates: start: 20141223, end: 20150104

REACTIONS (1)
  - Keratosis follicular [Not Recovered/Not Resolved]

NARRATIVE: CASE EVENT DATE: 20141228
